FAERS Safety Report 9239798 (Version 1)
Quarter: 2013Q2

REPORT INFORMATION
  Report Type: Spontaneous
  Country: CA (occurrence: CA)
  Receive Date: 20130418
  Receipt Date: 20130418
  Transmission Date: 20140414
  Serious: Yes (Other)
  Sender: FDA-Public Use
  Company Number: CA-TEVA-399221USA

PATIENT
  Sex: Female

DRUGS (1)
  1. AMLODIPINE [Suspect]

REACTIONS (5)
  - Haemorrhage [Unknown]
  - Muscle spasms [Unknown]
  - Dizziness [Unknown]
  - Swelling [Unknown]
  - Vision blurred [Unknown]
